FAERS Safety Report 6807196-2 (Version None)
Quarter: 2010Q2

REPORT INFORMATION
  Report Type: 
  Country: None (occurrence: None)
  Receive Date: 20100629
  Receipt Date: 20080814
  Transmission Date: 20101027
  Serious: No
  Sender: FDA-Public Use
  Company Number: US-PFIZER INC-2008068253

PATIENT
  Sex: Male
  Weight: 73.48 kg

DRUGS (7)
  1. CARDURA [Suspect]
     Indication: BENIGN PROSTATIC HYPERPLASIA
     Dates: start: 19960101, end: 20080101
  2. PROSCAR [Concomitant]
  3. ENALAPRIL MALEATE [Concomitant]
  4. TOPROL-XL [Concomitant]
  5. PLAVIX [Concomitant]
  6. LIPITOR [Concomitant]
  7. VITAMIN C [Concomitant]

REACTIONS (1)
  - ORTHOSTATIC HYPOTENSION [None]
